FAERS Safety Report 14445497 (Version 1)
Quarter: 2018Q1

REPORT INFORMATION
  Report Type: Spontaneous
  Country: US (occurrence: US)
  Receive Date: 20180126
  Receipt Date: 20180126
  Transmission Date: 20180509
  Serious: No
  Sender: FDA-Public Use
  Company Number: US-ABBVIE-17K-163-2063577-00

PATIENT
  Sex: Female

DRUGS (4)
  1. VITAMIN D [Concomitant]
     Active Substance: CHOLECALCIFEROL
     Indication: VITAMIN SUPPLEMENTATION
  2. ATORVASTATIN [Concomitant]
     Active Substance: ATORVASTATIN
     Indication: BLOOD CHOLESTEROL
  3. HUMIRA [Suspect]
     Active Substance: ADALIMUMAB
     Indication: PSORIASIS
     Route: 058
     Dates: start: 201705
  4. INSULIN [Concomitant]
     Active Substance: INSULIN NOS
     Indication: DIABETES MELLITUS

REACTIONS (3)
  - Pruritus genital [Not Recovered/Not Resolved]
  - Hyperhidrosis [Not Recovered/Not Resolved]
  - Rash generalised [Not Recovered/Not Resolved]

NARRATIVE: CASE EVENT DATE: 2017
